FAERS Safety Report 16766158 (Version 2)
Quarter: 2019Q3

REPORT INFORMATION
  Report Type: Report from Study
  Country: CA (occurrence: CA)
  Receive Date: 20190903
  Receipt Date: 20190916
  Transmission Date: 20191005
  Serious: Yes (Hospitalization)
  Sender: FDA-Public Use
  Company Number: PHHY2019CA203784

PATIENT
  Sex: Female

DRUGS (6)
  1. ADRENALINE [Suspect]
     Active Substance: EPINEPHRINE
     Indication: LOCAL ANAESTHESIA
     Route: 065
  2. TAFINLAR [Suspect]
     Active Substance: DABRAFENIB MESYLATE
     Indication: NON-SMALL CELL LUNG CANCER
     Dosage: 150 MG, UNK
     Route: 048
     Dates: start: 20190815
  3. MEKINIST [Suspect]
     Active Substance: TRAMETINIB DIMETHYL SULFOXIDE
     Indication: NON-SMALL CELL LUNG CANCER
     Dosage: 2 MG, UNK
     Route: 048
     Dates: start: 20190815
  4. TAFINLAR [Suspect]
     Active Substance: DABRAFENIB MESYLATE
     Dosage: REDUCED DOSES OF BOTH HER MEDICATIONS BY HALF
     Route: 048
     Dates: end: 20190831
  5. MEKINIST [Suspect]
     Active Substance: TRAMETINIB DIMETHYL SULFOXIDE
     Dosage: REDUCED DOSES OF BOTH HER MEDICATIONS BY HALF
     Route: 048
     Dates: end: 20190831
  6. XYLOCAINE [Suspect]
     Active Substance: LIDOCAINE HYDROCHLORIDE
     Indication: LOCAL ANAESTHESIA
     Route: 065

REACTIONS (10)
  - Myalgia [Unknown]
  - Vomiting [Unknown]
  - Haemoglobin decreased [Unknown]
  - Musculoskeletal pain [Unknown]
  - Rash pruritic [Unknown]
  - Palpitations [Unknown]
  - Back pain [Unknown]
  - Nausea [Unknown]
  - Flank pain [Unknown]
  - Renal impairment [Unknown]
